FAERS Safety Report 7987037-0 (Version None)
Quarter: 2011Q4

REPORT INFORMATION
  Report Type: 
  Country: None (occurrence: None)
  Receive Date: 20111216
  Receipt Date: 20110919
  Transmission Date: 20120403
  Serious: Yes (Hospitalization)
  Sender: FDA-Public Use
  Company Number: PR-BRISTOL-MYERS SQUIBB COMPANY-16071953

PATIENT
  Age: 28 Year
  Sex: Female
  Weight: 141 kg

DRUGS (3)
  1. SEROQUEL [Concomitant]
  2. DEPAKOTE [Concomitant]
  3. ABILIFY [Suspect]
     Dosage: STOPPED ON 2009
     Dates: start: 20080201, end: 20110501

REACTIONS (5)
  - HOMICIDAL IDEATION [None]
  - SUICIDAL IDEATION [None]
  - TREMOR [None]
  - WEIGHT INCREASED [None]
  - LACRIMATION INCREASED [None]
